FAERS Safety Report 9853214 (Version 1)
Quarter: 2014Q1

REPORT INFORMATION
  Report Type: Spontaneous
  Country: ES (occurrence: ES)
  Receive Date: 20140129
  Receipt Date: 20140129
  Transmission Date: 20141002
  Serious: Yes (Other)
  Sender: FDA-Public Use
  Company Number: ES-ACTAVIS-2014-00732

PATIENT
  Age: 34 Year
  Sex: Female

DRUGS (4)
  1. FLUCONAZOLE (UNKNOWN) [Suspect]
     Indication: VULVOVAGINAL CANDIDIASIS
     Dosage: 150 MG, ONCE A MONTH
     Route: 065
  2. MICONAZOLE (UNKNOWN) [Suspect]
     Indication: VULVOVAGINAL CANDIDIASIS
     Dosage: UNKNOWN
     Route: 061
  3. BORIC ACID [Suspect]
     Indication: VULVOVAGINAL CANDIDIASIS
     Dosage: UNKNOWN
     Route: 067
  4. ITRACONAZOLE (UNKNOWN) [Suspect]
     Indication: VULVOVAGINAL CANDIDIASIS
     Dosage: UNKNOWN
     Route: 048

REACTIONS (2)
  - Drug resistance [Unknown]
  - Drug ineffective [Unknown]
